FAERS Safety Report 12194787 (Version 2)
Quarter: 2016Q1

REPORT INFORMATION
  Report Type: Spontaneous
  Country: IT (occurrence: IT)
  Receive Date: 20160321
  Receipt Date: 20160322
  Transmission Date: 20160526
  Serious: Yes (Death, Other)
  Sender: FDA-Public Use
  Company Number: IT-GLAXOSMITHKLINE-IT2016GSK038124

PATIENT
  Sex: Male

DRUGS (1)
  1. BUPROPION. [Suspect]
     Active Substance: BUPROPION
     Indication: PRODUCT USED FOR UNKNOWN INDICATION
     Route: 042

REACTIONS (3)
  - Drug dependence [Unknown]
  - Incorrect route of drug administration [Unknown]
  - Anaphylactic shock [Fatal]

NARRATIVE: CASE EVENT DATE: 20111226
